FAERS Safety Report 7787314-2 (Version None)
Quarter: 2011Q3

REPORT INFORMATION
  Report Type: 
  Country: None (occurrence: None)
  Receive Date: 20110929
  Receipt Date: 20110922
  Transmission Date: 20111222
  Serious: Yes (Death, Other)
  Sender: FDA-Public Use
  Company Number: US-ELI_LILLY_AND_COMPANY-US201109006491

PATIENT
  Sex: Female

DRUGS (1)
  1. ALIMTA [Suspect]
     Indication: COLON CANCER
     Dosage: 800 MG, UNK
     Dates: start: 20110114

REACTIONS (3)
  - NEOPLASM PROGRESSION [None]
  - OFF LABEL USE [None]
  - DEATH [None]
